FAERS Safety Report 9653313 (Version 1)
Quarter: 2013Q4

REPORT INFORMATION
  Report Type: Spontaneous
  Country: US (occurrence: None)
  Receive Date: 20131028
  Receipt Date: 20131028
  Transmission Date: 20140711
  Serious: Yes (Hospitalization, Other)
  Sender: FDA-Public Use
  Company Number: AG-2013-015646

PATIENT
  Age: 67 Year
  Sex: Male

DRUGS (1)
  1. CHLORAMBUCIL (CHLORAMBUCIL) (UNKNOWN) [Suspect]
     Indication: CHRONIC LYMPHOCYTIC LEUKAEMIA
     Dosage: (7.5 MG/M2, 1 IN 1 CYCLICAL), ORAL
     Route: 048
     Dates: start: 20120802

REACTIONS (3)
  - Pyrexia [None]
  - Sepsis [None]
  - Hypotension [None]
